FAERS Safety Report 4277043-4 (Version None)
Quarter: 2004Q1

REPORT INFORMATION
  Report Type: 
  Country: None (occurrence: None)
  Receive Date: 20040120
  Receipt Date: 20040106
  Transmission Date: 20041129
  Serious: Yes (Death)
  Sender: FDA-Public Use
  Company Number: 2004AP00053

PATIENT
  Age: 66 Year
  Sex: Male

DRUGS (11)
  1. IRESSA [Suspect]
     Indication: LUNG NEOPLASM MALIGNANT
     Dosage: 250 MG DAILY PO
     Route: 048
     Dates: start: 20031224, end: 20040102
  2. CLINDAMYCIN PHOSPHATE [Concomitant]
  3. CIPROXAN [Concomitant]
  4. DUROTEP [Concomitant]
  5. CARBOPLATIN [Concomitant]
  6. TAXOL [Concomitant]
  7. TAXOTERE [Concomitant]
  8. RADIOTHERAPY [Concomitant]
  9. BROACT [Concomitant]
  10. CARBENIN [Concomitant]
  11. VOLTAREN [Concomitant]

REACTIONS (4)
  - PNEUMONITIS [None]
  - PYREXIA [None]
  - SEPSIS [None]
  - WHITE BLOOD CELL COUNT DECREASED [None]
